FAERS Safety Report 10891439 (Version 2)
Quarter: 2015Q1

REPORT INFORMATION
  Report Type: Spontaneous
  Country: LT (occurrence: LT)
  Receive Date: 20150306
  Receipt Date: 20150327
  Transmission Date: 20150721
  Serious: Yes (Death, Hospitalization)
  Sender: FDA-Public Use
  Company Number: LT-ASTRAZENECA-2015SE19179

PATIENT
  Age: 50 Year
  Sex: Female
  Weight: 120 kg

DRUGS (1)
  1. BYDUREON [Suspect]
     Active Substance: EXENATIDE
     Indication: TYPE 2 DIABETES MELLITUS
     Dosage: 1 INJECTION PER WEEK
     Route: 058

REACTIONS (1)
  - Injection site nodule [Fatal]
